FAERS Safety Report 6982800-7 (Version None)
Quarter: 2010Q3

REPORT INFORMATION
  Report Type: 
  Country: None (occurrence: None)
  Receive Date: 20100914
  Receipt Date: 20100405
  Transmission Date: 20110219
  Serious: Yes (Hospitalization)
  Sender: FDA-Public Use
  Company Number: US-PFIZER INC-2010043549

PATIENT
  Sex: Female

DRUGS (2)
  1. LYRICA [Suspect]
  2. OXYCODONE [Concomitant]
     Dosage: UNK

REACTIONS (1)
  - EUPHORIC MOOD [None]
